FAERS Safety Report 8862819 (Version 1)
Quarter: 2012Q4

REPORT INFORMATION
  Report Type: 
  Country: US (occurrence: US)
  Receive Date: 20121026
  Receipt Date: 20121026
  Transmission Date: 20130627
  Serious: Yes (Hospitalization)
  Sender: FDA-Public Use
  Company Number: US-GLAXOSMITHKLINE-A0776008A

PATIENT
  Age: 63 Year
  Sex: Female
  Weight: 72.7 kg

DRUGS (4)
  1. AVANDIA [Suspect]
     Indication: DIABETES MELLITUS
     Dosage: 2MG Per day
     Route: 048
     Dates: start: 20010402, end: 200506
  2. CLONIDINE [Concomitant]
  3. NORVASC [Concomitant]
  4. ACCUPRIL [Concomitant]

REACTIONS (4)
  - Myocardial infarction [Not Recovered/Not Resolved]
  - Heart injury [Unknown]
  - Mobility decreased [Unknown]
  - Activities of daily living impaired [Unknown]
